FAERS Safety Report 21025412 (Version 6)
Quarter: 2022Q3

REPORT INFORMATION
  Report Type: Spontaneous
  Country: US (occurrence: US)
  Receive Date: 20220630
  Receipt Date: 20220923
  Transmission Date: 20221026
  Serious: Yes (Disabling, Other)
  Sender: FDA-Public Use
  Company Number: US-SANOFI-01160695

PATIENT
  Age: 70 Year
  Sex: Male

DRUGS (1)
  1. LANTUS SOLOSTAR [Suspect]
     Active Substance: INSULIN GLARGINE
     Indication: Diabetes mellitus
     Dosage: 22 IU, QD

REACTIONS (6)
  - Disability [Unknown]
  - Cataract operation [Unknown]
  - Visual impairment [Unknown]
  - Catastrophic reaction [Unknown]
  - Product storage error [Unknown]
  - Product dose omission issue [Unknown]
